FAERS Safety Report 8605118-5 (Version None)
Quarter: 2012Q3

REPORT INFORMATION
  Report Type: 
  Country: None (occurrence: None)
  Receive Date: 20120807
  Receipt Date: 20120727
  Transmission Date: 20120928
  Serious: Yes (Death)
  Sender: FDA-Public Use
  Company Number: USW201206-000101

PATIENT
  Age: 18 Year
  Sex: Male

DRUGS (3)
  1. DANTROLENE SODIUM [Suspect]
     Indication: HYPERTHERMIA MALIGNANT
     Dosage: 2.5 MG/KG, INITIAL DOSE
  2. SUCCINYLCHOLINE CHLORIDE [Suspect]
  3. SEVOFLURANE [Suspect]
     Indication: ANAESTHESIA
     Dosage: GAS ANESTHETIC

REACTIONS (11)
  - CARDIAC ARREST [None]
  - CARDIAC FAILURE [None]
  - PULMONARY OEDEMA [None]
  - COAGULOPATHY [None]
  - HAEMORRHAGE [None]
  - VENTRICULAR ARRHYTHMIA [None]
  - HYPERTHERMIA MALIGNANT [None]
  - BLOODY DISCHARGE [None]
  - NO THERAPEUTIC RESPONSE [None]
  - PUNCTURE SITE HAEMORRHAGE [None]
  - ORGAN FAILURE [None]
